FAERS Safety Report 9723497 (Version 2)
Quarter: 2013Q4

REPORT INFORMATION
  Report Type: Spontaneous
  Country: DE (occurrence: DE)
  Receive Date: 20131202
  Receipt Date: 20131221
  Transmission Date: 20140711
  Serious: Yes (Other)
  Sender: FDA-Public Use
  Company Number: DE-AMGEN-DEUSP2013083478

PATIENT
  Age: 47 Year
  Sex: Male

DRUGS (5)
  1. MIMPARA [Suspect]
     Indication: HYPERPARATHYROIDISM SECONDARY
     Dosage: 30 MG, QD
     Route: 065
  2. BASILIXIMAB [Concomitant]
  3. TACROLIMUS [Concomitant]
  4. PREDNISOLONE [Concomitant]
  5. MYCOPHENOLATE MOFETIL [Concomitant]

REACTIONS (7)
  - Nephrocalcinosis [Recovering/Resolving]
  - Renal transplant failure [Recovering/Resolving]
  - Hyperkalaemia [Unknown]
  - Hypercalcaemia [Unknown]
  - Blood phosphorus increased [Unknown]
  - Nasopharyngitis [Unknown]
  - Myalgia [Unknown]
